FAERS Safety Report 8117268-0 (Version None)
Quarter: 2012Q1

REPORT INFORMATION
  Report Type: 
  Country: None (occurrence: None)
  Receive Date: 20120206
  Receipt Date: 20120127
  Transmission Date: 20120608
  Serious: Yes (Hospitalization, Other)
  Sender: FDA-Public Use
  Company Number: US-MERCK-1103USA00983

PATIENT
  Age: 56 Year
  Sex: Female
  Weight: 53 kg

DRUGS (7)
  1. FOSAMAX PLUS D [Suspect]
     Indication: OSTEOPOROSIS
     Route: 048
     Dates: start: 20001001, end: 20090301
  2. FOSAMAX [Suspect]
     Route: 048
     Dates: start: 20001001, end: 20090301
  3. ALENDRONATE SODIUM [Suspect]
     Indication: OSTEOPOROSIS
     Route: 048
     Dates: start: 20090301, end: 20091112
  4. CORTICOSTEROIDS (UNSPECIFIED) [Concomitant]
     Route: 065
     Dates: start: 19980101, end: 20110101
  5. FOSAMAX [Suspect]
     Indication: OSTEOPOROSIS
     Route: 048
     Dates: start: 19970716, end: 20001001
  6. VITAMINS (UNSPECIFIED) [Concomitant]
     Route: 048
     Dates: start: 19900101
  7. FOLIC ACID [Concomitant]
     Route: 065
     Dates: start: 19990101

REACTIONS (54)
  - FEMUR FRACTURE [None]
  - SPINAL COLUMN STENOSIS [None]
  - INFECTION [None]
  - ARTHROPATHY [None]
  - SYNCOPE [None]
  - ANAEMIA [None]
  - GENITAL HERPES [None]
  - EMPHYSEMA [None]
  - HYPERTENSION [None]
  - AORTIC CALCIFICATION [None]
  - POLLAKIURIA [None]
  - IMPAIRED HEALING [None]
  - LACERATION [None]
  - MENTAL STATUS CHANGES [None]
  - SURGICAL FAILURE [None]
  - EXCORIATION [None]
  - HAEMORRHOIDS [None]
  - INCREASED TENDENCY TO BRUISE [None]
  - HERPES VIRUS INFECTION [None]
  - COLON ADENOMA [None]
  - CONVULSION [None]
  - ENCEPHALOPATHY [None]
  - SPINAL COMPRESSION FRACTURE [None]
  - ANXIETY [None]
  - DIVERTICULUM [None]
  - TOOTH DISORDER [None]
  - PAIN IN EXTREMITY [None]
  - OROPHARYNGEAL PAIN [None]
  - SCOLIOSIS [None]
  - DEVICE FAILURE [None]
  - FALL [None]
  - SQUAMOUS CELL CARCINOMA OF SKIN [None]
  - SCIATICA [None]
  - ROTATOR CUFF SYNDROME [None]
  - PULMONARY FIBROSIS [None]
  - LUNG NEOPLASM [None]
  - GINGIVAL DISORDER [None]
  - CLAVICLE FRACTURE [None]
  - SKULL FRACTURE [None]
  - JOINT DISLOCATION [None]
  - ADVERSE DRUG REACTION [None]
  - VITAMIN D DEFICIENCY [None]
  - INTERSTITIAL LUNG DISEASE [None]
  - CALCIUM DEFICIENCY [None]
  - INTERVERTEBRAL DISC DEGENERATION [None]
  - CONTUSION [None]
  - MITRAL VALVE INCOMPETENCE [None]
  - ARTHRALGIA [None]
  - SEBORRHOEIC KERATOSIS [None]
  - HEPATITIS A [None]
  - HAND FRACTURE [None]
  - CEREBRAL HAEMATOMA [None]
  - CERVICAL DYSPLASIA [None]
  - HYPOKALAEMIA [None]
